FAERS Safety Report 7386170-4 (Version None)
Quarter: 2011Q1

REPORT INFORMATION
  Report Type: 
  Country: None (occurrence: None)
  Receive Date: 20110329
  Receipt Date: 20110329
  Transmission Date: 20110831
  Serious: Yes (Life-Threatening, Other)
  Sender: FDA-Public Use
  Company Number: None

PATIENT
  Age: 76 Year
  Sex: Female
  Weight: 89.3586 kg

DRUGS (2)
  1. COZAAR [Suspect]
  2. LUMIGAN [Suspect]
     Indication: GLAUCOMA
     Dosage: 1 DROP DAILY OPHTHALMIC
     Route: 047
     Dates: start: 20110306, end: 20110318

REACTIONS (5)
  - SWELLING FACE [None]
  - PAIN [None]
  - SKIN DISCOLOURATION [None]
  - ERYTHEMA [None]
  - ACNE [None]
